FAERS Safety Report 16668270 (Version 1)
Quarter: 2019Q3

REPORT INFORMATION
  Report Type: Spontaneous
  Country: US (occurrence: US)
  Receive Date: 20190802
  Receipt Date: 20190802
  Transmission Date: 20191004
  Serious: Yes (Disabling)
  Sender: FDA-Public Use
  Company Number: None

PATIENT
  Age: 29 Year
  Sex: Female
  Weight: 67.5 kg

DRUGS (2)
  1. WOMENS VITAMINS [Concomitant]
  2. OXYCODONE HCL 20 MG TABLET [Suspect]
     Active Substance: OXYCODONE HYDROCHLORIDE
     Indication: PAIN
     Dosage: ?          QUANTITY:120 TABLET(S);?
     Route: 048

REACTIONS (4)
  - Product substitution issue [None]
  - Rash [None]
  - Pain [None]
  - Urticaria [None]

NARRATIVE: CASE EVENT DATE: 20190802
